FAERS Safety Report 4476233-5 (Version None)
Quarter: 2004Q3

REPORT INFORMATION
  Report Type: 
  Country: None (occurrence: None)
  Receive Date: 20040923
  Receipt Date: 20040719
  Transmission Date: 20050211
  Serious: No
  Sender: FDA-Public Use
  Company Number: USA040773010

PATIENT
  Age: 65 Year
  Sex: Male

DRUGS (1)
  1. FORTEO [Suspect]
     Indication: OSTEOPOROSIS

REACTIONS (2)
  - ABDOMINAL DISTENSION [None]
  - ABDOMINAL PAIN [None]
